FAERS Safety Report 21084328 (Version 1)
Quarter: 2022Q3

REPORT INFORMATION
  Report Type: Spontaneous
  Country: US (occurrence: US)
  Receive Date: 20220714
  Receipt Date: 20220714
  Transmission Date: 20221027
  Serious: Yes (Other)
  Sender: FDA-Public Use
  Company Number: US-GW PHARMA-2022-US-016882

PATIENT
  Sex: Male

DRUGS (1)
  1. EPIDIOLEX [Suspect]
     Active Substance: CANNABIDIOL
     Indication: Product used for unknown indication
     Dosage: 1 ML BID 5 DAYS, 2 ML BID 5 DAYS, 3 ML BID 5 DAYS, 4 ML BID 5 DAYS, 5 ML BID 10 DAYS
     Route: 048

REACTIONS (1)
  - Diarrhoea [Recovered/Resolved]
